FAERS Safety Report 5822600-4 (Version None)
Quarter: 2008Q3

REPORT INFORMATION
  Report Type: 
  Country: None (occurrence: None)
  Receive Date: 20080714
  Receipt Date: 20080302
  Transmission Date: 20090109
  Serious: Yes (Other)
  Sender: FDA-Public Use
  Company Number: 551238

PATIENT
  Age: 59 Year
  Sex: Female

DRUGS (1)
  1. BONIVA [Suspect]
     Indication: OSTEOPENIA
     Dosage: 150 MG 1 PER 1 ONE DOSE ORAL
     Route: 048
     Dates: start: 20070707, end: 20070707

REACTIONS (1)
  - EROSIVE OESOPHAGITIS [None]
